FAERS Safety Report 16185680 (Version 1)
Quarter: 2019Q2

REPORT INFORMATION
  Report Type: Spontaneous
  Country: US (occurrence: US)
  Receive Date: 20190308
  Receipt Date: 20190308
  Transmission Date: 20190711
  Serious: No
  Sender: FDA-Public Use
  Company Number: None

PATIENT
  Age: 31 Year
  Sex: Female

DRUGS (1)
  1. TALTZ [Suspect]
     Active Substance: IXEKIZUMAB
     Indication: PSORIASIS
     Dosage: ?          OTHER FREQUENCY:WK12/EVRY 4 WKS;?
     Route: 058
     Dates: start: 201901

REACTIONS (4)
  - Rash [None]
  - Angiopathy [None]
  - Pain in extremity [None]
  - Hypoaesthesia [None]
